FAERS Safety Report 10374831 (Version 1)
Quarter: 2014Q3

REPORT INFORMATION
  Report Type: Spontaneous
  Country: US (occurrence: None)
  Receive Date: 20140808
  Receipt Date: 20140808
  Transmission Date: 20150326
  Serious: Yes (Other)
  Sender: FDA-Public Use
  Company Number: None

PATIENT
  Age: 30 Year
  Sex: Female
  Weight: 49.9 kg

DRUGS (14)
  1. PORT [Concomitant]
  2. XIFAN [Concomitant]
  3. MAGNESIUM [Concomitant]
     Active Substance: MAGNESIUM
  4. BACLOFEN. [Concomitant]
     Active Substance: BACLOFEN
  5. FLUCONAZOLE. [Concomitant]
     Active Substance: FLUCONAZOLE
  6. NEOMYCIN [Concomitant]
     Active Substance: NEOMYCIN
  7. GABAPENTIN. [Concomitant]
     Active Substance: GABAPENTIN
  8. BENADRYL [Concomitant]
     Active Substance: DIPHENHYDRAMINE HYDROCHLORIDE
  9. CREON [Concomitant]
     Active Substance: PANCRELIPASE AMYLASE\PANCRELIPASE LIPASE\PANCRELIPASE PROTEASE
  10. CRANBERRY EXTRACT [Concomitant]
  11. ZOFRAN [Concomitant]
     Active Substance: ONDANSETRON HYDROCHLORIDE
  12. IMMUNOVIR [Concomitant]
  13. HEPARIN [Suspect]
     Active Substance: HEPARIN SODIUM
     Indication: COAGULOPATHY
     Route: 058
     Dates: start: 20140601, end: 20140806
  14. XANAX 02/2013 [Concomitant]

REACTIONS (4)
  - Injection site bruising [None]
  - Product quality issue [None]
  - Injection site haemorrhage [None]
  - Injection site pain [None]

NARRATIVE: CASE EVENT DATE: 20140601
